FAERS Safety Report 4427231-9 (Version None)
Quarter: 2004Q3

REPORT INFORMATION
  Report Type: 
  Country: None (occurrence: None)
  Receive Date: 20040817
  Receipt Date: 20040805
  Transmission Date: 20050211
  Serious: Yes (Other)
  Sender: FDA-Public Use
  Company Number: US-JNJFOC-20040305278

PATIENT
  Sex: Female
  Weight: 57.61 kg

DRUGS (8)
  1. REMICADE [Suspect]
     Route: 042
  2. REMICADE [Suspect]
     Indication: RHEUMATOID ARTHRITIS
     Route: 042
  3. METHOTREXATE [Concomitant]
  4. ATIVAN [Concomitant]
  5. ASPIRIN [Concomitant]
  6. MULTIVITAMIN [Concomitant]
  7. FOLIC ACID [Concomitant]
  8. PREDNISONE [Concomitant]

REACTIONS (3)
  - HYPERTENSION [None]
  - MYOCARDIAL INFARCTION [None]
  - SYSTEMIC LUPUS ERYTHEMATOSUS [None]
